FAERS Safety Report 20936245 (Version 1)
Quarter: 2022Q2

REPORT INFORMATION
  Report Type: Spontaneous
  Country: US (occurrence: None)
  Receive Date: 20220609
  Receipt Date: 20220609
  Transmission Date: 20220721
  Serious: No
  Sender: FDA-Public Use
  Company Number: US-ROCHE-2867226

PATIENT
  Sex: Female

DRUGS (5)
  1. ACTEMRA [Suspect]
     Active Substance: TOCILIZUMAB
     Indication: Pulmonary fibrosis
     Dosage: 162 MG/0.9 M
     Route: 058
     Dates: start: 20210611
  2. ACTEMRA [Suspect]
     Active Substance: TOCILIZUMAB
  3. ACTEMRA [Suspect]
     Active Substance: TOCILIZUMAB
     Indication: Systemic scleroderma
  4. ACTEMRA [Suspect]
     Active Substance: TOCILIZUMAB
  5. OFEV [Suspect]
     Active Substance: NINTEDANIB
     Indication: Product used for unknown indication
     Route: 065

REACTIONS (10)
  - Nausea [Unknown]
  - Diarrhoea [Unknown]
  - Nasopharyngitis [Unknown]
  - Influenza like illness [Unknown]
  - Off label use [Unknown]
  - Pyrexia [Unknown]
  - Weight decreased [Unknown]
  - Feeding disorder [Unknown]
  - Dehydration [Unknown]
  - Fatigue [Unknown]
